FAERS Safety Report 5022151-3 (Version None)
Quarter: 2006Q2

REPORT INFORMATION
  Report Type: 
  Country: None (occurrence: None)
  Receive Date: 20060428
  Receipt Date: 20060103
  Transmission Date: 20061013
  Serious: Yes (Death)
  Sender: FDA-Public Use
  Company Number: COT_0355_2006

PATIENT
  Age: 60 Year
  Sex: Male
  Weight: 83.4619 kg

DRUGS (18)
  1. VENTAVIS [Suspect]
     Indication: PULMONARY HYPERTENSION
     Dosage: 5 MCG 6TO9X/DAY IH
     Dates: start: 20050815
  2. VENTAVIS [Suspect]
     Indication: PULMONARY HYPERTENSION
     Dosage: 5 MCG 6TO9X/DAY IH
     Dates: start: 20050815
  3. NIFEDIPINE [Concomitant]
  4. OXYGEN [Concomitant]
  5. METOCLOPRAMIDE [Concomitant]
  6. MUPIROCIN [Concomitant]
  7. NASACORT [Concomitant]
  8. OSCAL 500-D [Concomitant]
  9. METOLAZONE [Concomitant]
  10. TESTOSTERONE [Concomitant]
  11. ASPIRIN [Concomitant]
  12. CENTRUM SILVER [Concomitant]
  13. PROTONIX [Concomitant]
  14. LEXAPRO [Concomitant]
  15. ZYRTEC [Concomitant]
  16. TRACLEER [Concomitant]
  17. AMOXICILLIN [Concomitant]
  18. TORSEMIDE [Concomitant]

REACTIONS (1)
  - SCLERODERMA [None]
